FAERS Safety Report 7600939-X (Version None)
Quarter: 2011Q3

REPORT INFORMATION
  Report Type: 
  Country: None (occurrence: None)
  Receive Date: 20110711
  Receipt Date: 20110630
  Transmission Date: 20111222
  Serious: Yes (Other)
  Sender: FDA-Public Use
  Company Number: JP-ASTRAZENECA-2011SE39491

PATIENT
  Age: 37 Year
  Sex: Male

DRUGS (4)
  1. ROHIPNOL [Concomitant]
     Route: 048
  2. PAXIL [Concomitant]
     Indication: PANIC DISORDER
     Route: 048
  3. AMOXAPINE [Concomitant]
     Route: 048
  4. SEROQUEL [Suspect]
     Indication: INSOMNIA
     Route: 048
     Dates: start: 20110201, end: 20110601

REACTIONS (2)
  - DIABETES MELLITUS [None]
  - OFF LABEL USE [None]
